FAERS Safety Report 10090489 (Version 3)
Quarter: 2014Q3

REPORT INFORMATION
  Report Type: Spontaneous
  Country: US (occurrence: US)
  Receive Date: 20140421
  Receipt Date: 20140718
  Transmission Date: 20150326
  Serious: Yes (Death, Hospitalization)
  Sender: FDA-Public Use
  Company Number: US-BRISTOL-MYERS SQUIBB COMPANY-20622056

PATIENT
  Age: 52 Year
  Sex: Male
  Weight: 111.56 kg

DRUGS (8)
  1. TRAMETINIB [Suspect]
     Active Substance: TRAMETINIB
     Indication: METASTATIC MALIGNANT MELANOMA
     Route: 048
     Dates: start: 201310
  2. PERCOCET [Concomitant]
     Active Substance: ACETAMINOPHEN\OXYCODONE HYDROCHLORIDE
  3. YERVOY [Suspect]
     Active Substance: IPILIMUMAB
     Indication: METASTATIC MALIGNANT MELANOMA
     Dosage: TOTAL-340MG
     Route: 042
     Dates: start: 20140214
  4. ZOLEDRONIC ACID [Concomitant]
     Active Substance: ZOLEDRONIC ACID
  5. DABRAFENIB [Suspect]
     Active Substance: DABRAFENIB
     Indication: METASTATIC MALIGNANT MELANOMA
     Dates: start: 201310
  6. ATENOLOL. [Concomitant]
     Active Substance: ATENOLOL
  7. DILAUDID [Concomitant]
     Active Substance: HYDROMORPHONE HYDROCHLORIDE
  8. TAFINLAR [Suspect]
     Active Substance: DABRAFENIB MESYLATE
     Indication: METASTATIC MALIGNANT MELANOMA
     Route: 048
     Dates: start: 201310

REACTIONS (15)
  - Death [Fatal]
  - Disorientation [Recovered/Resolved]
  - Hyponatraemia [Unknown]
  - Hydronephrosis [Unknown]
  - Septic shock [Unknown]
  - Pancytopenia [Unknown]
  - Venous thrombosis [Unknown]
  - Pyrexia [Unknown]
  - Tremor [Recovered/Resolved]
  - Malignant neoplasm progression [Unknown]
  - Illusion [Recovered/Resolved]
  - Fungal skin infection [Unknown]
  - Dehydration [Unknown]
  - Infusion related reaction [Recovered/Resolved]
  - Chills [Unknown]

NARRATIVE: CASE EVENT DATE: 201402
